FAERS Safety Report 5486061-X (Version None)
Quarter: 2007Q4

REPORT INFORMATION
  Report Type: 
  Country: None (occurrence: None)
  Receive Date: 20071015
  Receipt Date: 20071005
  Transmission Date: 20080405
  Serious: Yes (Other)
  Sender: FDA-Public Use
  Company Number: AU-PFIZER INC-2007083940

PATIENT
  Age: 64 Year
  Sex: Male

DRUGS (9)
  1. LIPITOR [Suspect]
     Route: 048
  2. EZETROL [Concomitant]
  3. DISPRIN [Concomitant]
  4. DIAFORMIN [Concomitant]
  5. GLYADE [Concomitant]
  6. MINAX [Concomitant]
  7. ACIMAX [Concomitant]
  8. TRITACE [Concomitant]
  9. VITAMIN CAP [Concomitant]

REACTIONS (3)
  - HYPERTENSION [None]
  - MUSCLE SPASMS [None]
  - PAIN IN EXTREMITY [None]
